FAERS Safety Report 25206241 (Version 2)
Quarter: 2025Q2

REPORT INFORMATION
  Report Type: Report from Study
  Country: CA (occurrence: CA)
  Receive Date: 20250417
  Receipt Date: 20250526
  Transmission Date: 20250717
  Serious: Yes (Hospitalization)
  Sender: ALEXION PHARMACEUTICALS
  Company Number: CA-AstraZeneca-CH-00829327A

PATIENT
  Age: 68 Year

DRUGS (6)
  1. OSIMERTINIB [Suspect]
     Active Substance: OSIMERTINIB
     Indication: Non-small cell lung cancer metastatic
     Dosage: 80 MILLIGRAM, QD
  2. OSIMERTINIB [Suspect]
     Active Substance: OSIMERTINIB
  3. APIXABAN [Concomitant]
     Active Substance: APIXABAN
     Dosage: 5 MILLIGRAM, BID
  4. ELAVIL [Concomitant]
     Active Substance: AMITRIPTYLINE HYDROCHLORIDE
     Dosage: 6 DOSAGE FORM, QD
  5. VITAMIN D [Concomitant]
     Active Substance: VITAMIN D NOS
  6. CHONDROITIN SULFATE (BOVINE)\GLUCOSAMINE HYDROCHLORIDE [Concomitant]
     Active Substance: CHONDROITIN SULFATE (BOVINE)\GLUCOSAMINE HYDROCHLORIDE

REACTIONS (4)
  - Cerebrovascular accident [Unknown]
  - Aphasia [Unknown]
  - Influenza [Unknown]
  - Hypertension [Unknown]
